FAERS Safety Report 10934882 (Version 1)
Quarter: 2015Q1

REPORT INFORMATION
  Report Type: Spontaneous
  Country: BE (occurrence: BE)
  Receive Date: 20150320
  Receipt Date: 20150320
  Transmission Date: 20150721
  Serious: Yes (Other)
  Sender: FDA-Public Use
  Company Number: BE-009507513-1502BEL004294

PATIENT
  Age: 48 Year
  Sex: Female
  Weight: 72 kg

DRUGS (9)
  1. ESMERON [Suspect]
     Active Substance: ROCURONIUM BROMIDE
     Indication: ANAESTHESIA
     Dosage: UNK
     Route: 042
     Dates: start: 20141205, end: 20141205
  2. LIDOCAINE. [Suspect]
     Active Substance: LIDOCAINE
     Dosage: UNK
     Dates: start: 20141205, end: 20141205
  3. CEFAZOLIN [Suspect]
     Active Substance: CEFAZOLIN
     Dosage: UNK
     Dates: start: 20141205
  4. CALCIUM CARBONATE. [Concomitant]
     Active Substance: CALCIUM CARBONATE
     Dosage: 1 TABLET ONCE A DAY ATT 20:00
     Route: 048
  5. DEPAKINE CHRONO [Concomitant]
     Active Substance: VALPROATE SODIUM
     Dosage: 1 TABLET ONCE A DAY AT 8:00
     Route: 048
  6. PROPOFOL. [Suspect]
     Active Substance: PROPOFOL
     Indication: ANAESTHESIA
     Dosage: UNK
     Dates: start: 20141205, end: 20141205
  7. PLASMA LYTE (ELECTROLYTES (UNSPECIFIED)) [Suspect]
     Active Substance: ELECTROLYTES NOS
     Dosage: UNK
     Dates: start: 20141205, end: 20141205
  8. SEVOFLURANE. [Suspect]
     Active Substance: SEVOFLURANE
     Indication: ANAESTHESIA
     Dosage: UNK
     Dates: start: 20141205, end: 20141205
  9. ONEALFA [Concomitant]
     Active Substance: ALFACALCIDOL
     Dosage: 2 CAPSULES ONCE A DAY AT 20:00
     Route: 048

REACTIONS (6)
  - Rash vesicular [Unknown]
  - Scratch [Unknown]
  - Pneumonia aspiration [Unknown]
  - Injury [Unknown]
  - Nervousness [Unknown]
  - Anaphylactic shock [Recovered/Resolved]

NARRATIVE: CASE EVENT DATE: 20141205
